FAERS Safety Report 13017498 (Version 2)
Quarter: 2016Q4

REPORT INFORMATION
  Report Type: Other
  Country: NL (occurrence: NL)
  Receive Date: 20161212
  Receipt Date: 20161228
  Transmission Date: 20170207
  Serious: Yes (Other)
  Sender: FDA-Public Use
  Company Number: NL-APOTEX-2016AP015451

PATIENT
  Age: 48 Year
  Sex: Female
  Weight: 57 kg

DRUGS (3)
  1. AZITHROMYCIN APOTEX FILMOMHULDE TABLETTEN [Suspect]
     Active Substance: AZITHROMYCIN
     Indication: URINARY TRACT INFECTION
     Dosage: 500 MG, UNK
     Route: 048
     Dates: start: 20161117
  2. NITROFURANTOINE APOTEX, CAPSULES [Interacting]
     Active Substance: NITROFURANTOIN
     Indication: URINARY TRACT INFECTION
     Dosage: 50 MG, QID
     Route: 048
     Dates: start: 20161117
  3. PREDNISON APOTEX TABLETTEN [Interacting]
     Active Substance: PREDNISONE
     Indication: URINARY TRACT INFECTION
     Dosage: UNK
     Route: 048
     Dates: start: 20161117

REACTIONS (2)
  - Drug interaction [Unknown]
  - Slow response to stimuli [Recovered/Resolved]

NARRATIVE: CASE EVENT DATE: 20161117
